FAERS Safety Report 21213668 (Version 1)
Quarter: 2022Q3

REPORT INFORMATION
  Report Type: Spontaneous
  Country: US (occurrence: US)
  Receive Date: 20220816
  Receipt Date: 20220816
  Transmission Date: 20221027
  Serious: Yes (Other)
  Sender: FDA-Public Use
  Company Number: US-BRISTOL-MYERS SQUIBB COMPANY-2022-087830

PATIENT
  Age: 62 Year
  Sex: Male

DRUGS (8)
  1. REVLIMID [Suspect]
     Active Substance: LENALIDOMIDE
     Indication: Plasma cell myeloma
     Dosage: QD X 14 DAYS
     Route: 048
     Dates: start: 20220505
  2. FISH OIL [Concomitant]
     Active Substance: FISH OIL
     Indication: Product used for unknown indication
     Route: 065
  3. LISINOPRIL GENOPTIM [Concomitant]
     Indication: Product used for unknown indication
     Route: 065
  4. HYPOTEN [AMLODIPINE] [Concomitant]
     Indication: Product used for unknown indication
     Route: 065
  5. M PANTOPRAZOLE [Concomitant]
     Indication: Product used for unknown indication
     Route: 065
  6. OXYCOD [OXYCODONE HYDROCHLORIDE] [Concomitant]
     Indication: Product used for unknown indication
     Route: 065
  7. SCD ACYCLOVIR [Concomitant]
     Indication: Product used for unknown indication
     Route: 065
  8. NOFUNG [FLUCONAZOLE] [Concomitant]
     Indication: Product used for unknown indication
     Route: 065

REACTIONS (2)
  - Herpes zoster [Unknown]
  - Off label use [Unknown]

NARRATIVE: CASE EVENT DATE: 20220725
